FAERS Safety Report 6680713-1 (Version None)
Quarter: 2010Q2

REPORT INFORMATION
  Report Type: 
  Country: None (occurrence: None)
  Receive Date: 20100414
  Receipt Date: 20100412
  Transmission Date: 20101027
  Serious: Yes (Death)
  Sender: FDA-Public Use
  Company Number: GB-ASTRAZENECA-2010SE15875

PATIENT
  Sex: Male

DRUGS (3)
  1. PROPOFOL [Suspect]
     Route: 042
  2. FLOMAX [Suspect]
  3. VALIUM [Concomitant]

REACTIONS (1)
  - CARDIAC ARREST [None]
